FAERS Safety Report 22234318 (Version 1)
Quarter: 2023Q2

REPORT INFORMATION
  Report Type: Spontaneous
  Country: US (occurrence: None)
  Receive Date: 20230419
  Receipt Date: 20230419
  Transmission Date: 20230721
  Serious: No
  Sender: FDA-Public Use
  Company Number: None

PATIENT
  Age: 92 Year
  Sex: Female

DRUGS (1)
  1. DERMASIL [Suspect]
     Active Substance: DIMETHICONE

REACTIONS (4)
  - Application site swelling [None]
  - Application site pain [None]
  - Application site pruritus [None]
  - Application site erythema [None]

NARRATIVE: CASE EVENT DATE: 20230418
